FAERS Safety Report 7215070-5 (Version None)
Quarter: 2011Q1

REPORT INFORMATION
  Report Type: 
  Country: None (occurrence: None)
  Receive Date: 20110107
  Receipt Date: 20100726
  Transmission Date: 20110831
  Serious: No
  Sender: FDA-Public Use
  Company Number: A0874101A

PATIENT
  Sex: Male

DRUGS (1)
  1. LOVAZA [Suspect]
     Dosage: 8G PER DAY
     Route: 048
     Dates: start: 20100101

REACTIONS (3)
  - OVERDOSE [None]
  - INFLAMMATION [None]
  - MUSCULOSKELETAL DISCOMFORT [None]
